FAERS Safety Report 15453767 (Version 1)
Quarter: 2018Q4

REPORT INFORMATION
  Report Type: Spontaneous
  Country: US (occurrence: US)
  Receive Date: 20181001
  Receipt Date: 20181001
  Transmission Date: 20190204
  Serious: No
  Sender: FDA-Public Use
  Company Number: US-TEIKOKU PHARMA USA-TPU2018-00544

PATIENT
  Sex: Female
  Weight: 59.93 kg

DRUGS (3)
  1. SYNTHROID [Concomitant]
     Active Substance: LEVOTHYROXINE SODIUM
     Indication: HYPOTHYROIDISM
  2. GABAPENTIN. [Concomitant]
     Active Substance: GABAPENTIN
  3. LIDOCAINE PATCH [Suspect]
     Active Substance: LIDOCAINE
     Indication: NERVE INJURY
     Dosage: BACK OF MY THIGHS NEAR BUTTOCK OR LOWER BACK

REACTIONS (1)
  - Application site pain [Unknown]
